FAERS Safety Report 7746840-2 (Version None)
Quarter: 2011Q3

REPORT INFORMATION
  Report Type: 
  Country: None (occurrence: None)
  Receive Date: 20110908
  Receipt Date: 20110830
  Transmission Date: 20111222
  Serious: Yes (Other)
  Sender: FDA-Public Use
  Company Number: DEP_00511_2011

PATIENT
  Age: 69 Year
  Sex: Male

DRUGS (4)
  1. SIMVASTATIN [Suspect]
     Indication: HYPERCHOLESTEROLAEMIA
     Dosage: DF
  2. ASPIRIN [Suspect]
     Indication: PROPHYLAXIS
     Dosage: DF
  3. RAMIPRIL [Suspect]
     Indication: PROPHYLAXIS
     Dosage: DF
  4. METFORMIN HCL [Suspect]
     Indication: TYPE 2 DIABETES MELLITUS
     Dosage: DF

REACTIONS (3)
  - NAEVUS FLAMMEUS [None]
  - ACTINIC ELASTOSIS [None]
  - REFUSAL OF TREATMENT BY PATIENT [None]
